FAERS Safety Report 14944647 (Version 9)
Quarter: 2019Q1

REPORT INFORMATION
  Report Type: Report from Study
  Country: DE (occurrence: DE)
  Receive Date: 20180529
  Receipt Date: 20190315
  Transmission Date: 20190417
  Serious: Yes (Hospitalization)
  Sender: FDA-Public Use
  Company Number: DE-ROCHE-2127844

PATIENT
  Age: 76 Year
  Sex: Female
  Weight: 72 kg

DRUGS (30)
  1. SITAGLIPTIN [Concomitant]
     Active Substance: SITAGLIPTIN
     Indication: DIABETES MELLITUS
     Route: 048
     Dates: start: 20020101
  2. THROMBOPHOB [Concomitant]
     Indication: HAEMATOMA
     Route: 061
     Dates: start: 20180413
  3. FERRO-SANOL DUODENAL [Concomitant]
     Active Substance: FERROUS GLYCINE SULFATE
     Indication: IRON DEFICIENCY
     Route: 048
     Dates: start: 20180518
  4. PREDNISOLON [Concomitant]
     Active Substance: PREDNISOLONE
     Indication: ASTHMA
     Route: 048
     Dates: start: 20180409
  5. PREDNISOLON [Concomitant]
     Active Substance: PREDNISOLONE
     Route: 048
     Dates: start: 20180518, end: 20180525
  6. PREDNISOLON [Concomitant]
     Active Substance: PREDNISOLONE
     Route: 048
     Dates: start: 20180526, end: 20180602
  7. CALCILAC (GERMANY) [Concomitant]
     Active Substance: CALCIUM CARBONATE\CHOLECALCIFEROL
     Indication: HYPOCALCAEMIA
     Route: 048
     Dates: start: 20180503
  8. STEROFUNDIN [Concomitant]
     Active Substance: CALCIUM CHLORIDE\MAGNESIUM CHLORIDE\POTASSIUM CHLORIDE\SODIUM ACETATE\SODIUM CHLORIDE
     Dosage: DOSE UNIT AND FREQUENCY: UNKNOWN
     Route: 042
     Dates: start: 20180518
  9. TORASEMID [Concomitant]
     Active Substance: TORSEMIDE
     Indication: OEDEMA
     Route: 048
     Dates: start: 20180404
  10. CLINDAMYCIN. [Concomitant]
     Active Substance: CLINDAMYCIN
     Indication: C-REACTIVE PROTEIN INCREASED
     Route: 048
     Dates: start: 20180610
  11. BUDESONIDE. [Concomitant]
     Active Substance: BUDESONIDE
     Indication: ASTHMA
     Route: 048
     Dates: start: 19970101
  12. KALIUM VERLA [Concomitant]
     Active Substance: POTASSIUM CITRATE
     Indication: HYPOKALAEMIA
     Dosage: FREQUENCY: UNKNOWN
     Route: 048
     Dates: start: 20180518
  13. FOSFOMYCIN [Concomitant]
     Active Substance: FOSFOMYCIN
     Dosage: FREQUENCY: UNKNOWN
     Route: 042
     Dates: start: 20180518, end: 20180519
  14. COBIMETINIB. [Suspect]
     Active Substance: COBIMETINIB
     Indication: MALIGNANT MELANOMA
     Dosage: MOST RECENT DOSE OF COBIMETINIB PRIOR TO EVENT ONSET WAS ON 17/MAY/2018.
     Route: 048
     Dates: start: 20180309
  15. MONTELUKAST [Concomitant]
     Active Substance: MONTELUKAST SODIUM
     Indication: ASTHMA
     Route: 048
     Dates: start: 19970101
  16. PREDNISOLON [Concomitant]
     Active Substance: PREDNISOLONE
     Route: 048
     Dates: start: 20180603
  17. PREDNISOLON [Concomitant]
     Active Substance: PREDNISOLONE
     Route: 048
     Dates: start: 19970101, end: 20180408
  18. PLACEBO [Suspect]
     Active Substance: UNSPECIFIED INGREDIENT
     Indication: MALIGNANT MELANOMA
     Dosage: MOST RECENT DOSE PRIOR TO EVENT ONSET WAS ON 03/MAY/2018
     Route: 042
     Dates: start: 20180406
  19. VEMURAFENIB. [Suspect]
     Active Substance: VEMURAFENIB
     Indication: MALIGNANT MELANOMA
     Dosage: DATE OF MOST RECENT DOSE OF VEMURAFENIB (3 TABLETS) PRIOR TO EVENT ONSET WAS ON 17/MAY/2018
     Route: 048
     Dates: start: 20180309
  20. ELIQUIS [Concomitant]
     Active Substance: APIXABAN
     Indication: ATRIAL FIBRILLATION
     Route: 048
     Dates: start: 20180101
  21. PANTOZOL [Concomitant]
     Active Substance: PANTOPRAZOLE SODIUM
     Route: 048
     Dates: start: 19970101
  22. ZOPICLON [Concomitant]
     Active Substance: ZOPICLONE
     Indication: SLEEP DISORDER
     Route: 048
     Dates: start: 20180518
  23. PANTOPRAZOL [Concomitant]
     Active Substance: PANTOPRAZOLE SODIUM
     Dosage: FREQUENCY AND DOSE UNIT: UNKNOWN
     Route: 048
     Dates: start: 20180518
  24. FUROSEMID [Concomitant]
     Active Substance: FUROSEMIDE
     Indication: POLYURIA
     Route: 042
     Dates: start: 20180612, end: 20180612
  25. IBUPROFEN. [Concomitant]
     Active Substance: IBUPROFEN
     Indication: SPINAL PAIN
     Route: 048
     Dates: start: 20180202
  26. VERAPAMIL [Concomitant]
     Active Substance: VERAPAMIL HYDROCHLORIDE
     Indication: ATRIAL FIBRILLATION
     Route: 048
     Dates: start: 20180306
  27. LOPERAMID [Concomitant]
     Active Substance: LOPERAMIDE
     Indication: DIARRHOEA
     Route: 048
     Dates: start: 20180318
  28. DEXAGENTA [Concomitant]
     Indication: SJOGREN^S SYNDROME
     Route: 061
     Dates: start: 20180425, end: 20180601
  29. CIPROFLOXACIN. [Concomitant]
     Active Substance: CIPROFLOXACIN
     Indication: CYSTITIS
     Route: 048
     Dates: start: 20180518, end: 20180604
  30. CLEXANE [Concomitant]
     Active Substance: ENOXAPARIN SODIUM
     Dosage: FREQUENCY: UNKNOWN
     Route: 042
     Dates: start: 20180518, end: 20180528

REACTIONS (2)
  - Asthenia [Not Recovered/Not Resolved]
  - Vertigo [Not Recovered/Not Resolved]

NARRATIVE: CASE EVENT DATE: 20180428
